FAERS Safety Report 16009580 (Version 1)
Quarter: 2019Q1

REPORT INFORMATION
  Report Type: Spontaneous
  Country: TR (occurrence: TR)
  Receive Date: 20190225
  Receipt Date: 20190225
  Transmission Date: 20190418
  Serious: Yes (Death, Hospitalization, Other)
  Sender: FDA-Public Use
  Company Number: TR-BRISTOL-MYERS SQUIBB COMPANY-BMS-2019-011474

PATIENT
  Age: 70 Year
  Sex: Male

DRUGS (1)
  1. OPDIVO [Suspect]
     Active Substance: NIVOLUMAB
     Indication: RENAL CELL CARCINOMA
     Dosage: 195 MG, UNK
     Route: 042
     Dates: start: 20181011, end: 20190104

REACTIONS (2)
  - Myalgia [Unknown]
  - Neuropathy peripheral [Fatal]

NARRATIVE: CASE EVENT DATE: 20181226
